FAERS Safety Report 21773156 (Version 1)
Quarter: 2022Q4

REPORT INFORMATION
  Report Type: Report from Study
  Country: US (occurrence: US)
  Receive Date: 20221223
  Receipt Date: 20221223
  Transmission Date: 20230113
  Serious: No
  Sender: FDA-Public Use
  Company Number: US-ABBVIE-4209224

PATIENT
  Sex: Female

DRUGS (1)
  1. HUMIRA [Suspect]
     Active Substance: ADALIMUMAB
     Indication: Hidradenitis
     Dosage: EVENT DATE WAS 2022.
     Route: 058
     Dates: start: 20220722

REACTIONS (2)
  - Sinus disorder [Recovering/Resolving]
  - Ear infection [Recovering/Resolving]
